FAERS Safety Report 7132267-3 (Version None)
Quarter: 2010Q4

REPORT INFORMATION
  Report Type: 
  Country: None (occurrence: None)
  Receive Date: 20101129
  Receipt Date: 20101129
  Transmission Date: 20110411
  Serious: Yes (Other)
  Sender: FDA-Public Use
  Company Number: None

PATIENT
  Sex: Male
  Weight: 68.0396 kg

DRUGS (1)
  1. TESTOSTERONE CYPIONATE [Suspect]
     Indication: PRODUCT CONTAMINATION MICROBIAL
     Dosage: 200 MG/ML BI WEEKLY INJ 100 MG IM
     Route: 030
     Dates: start: 20020101

REACTIONS (3)
  - DRUG INEFFECTIVE [None]
  - PRODUCT CONTAMINATION MICROBIAL [None]
  - PRODUCT CONTAMINATION PHYSICAL [None]
